FAERS Safety Report 14066040 (Version 3)
Quarter: 2017Q4

REPORT INFORMATION
  Report Type: Spontaneous
  Country: JP (occurrence: JP)
  Receive Date: 20171010
  Receipt Date: 20171108
  Transmission Date: 20180321
  Serious: Yes (Death, Hospitalization)
  Sender: FDA-Public Use
  Company Number: JP-ACTELION-A-CH2017-160712

PATIENT
  Age: 79 Year
  Sex: Male

DRUGS (7)
  1. UPTRAVI [Suspect]
     Active Substance: SELEXIPAG
     Indication: PULMONARY HYPERTENSION
     Dosage: UNK
     Route: 048
     Dates: start: 20170706, end: 20170721
  2. HYDREA [Concomitant]
     Active Substance: HYDROXYUREA
  3. UPTRAVI [Suspect]
     Active Substance: SELEXIPAG
     Dosage: UNK
     Route: 048
     Dates: start: 20170207
  4. UPTRAVI [Suspect]
     Active Substance: SELEXIPAG
     Dosage: 3.2 MG, QD
     Route: 048
     Dates: start: 20170608, end: 20170705
  5. REVATIO [Concomitant]
     Active Substance: SILDENAFIL CITRATE
     Dosage: UNK
     Dates: start: 201301, end: 201709
  6. TRACLEER [Concomitant]
     Active Substance: BOSENTAN
     Dosage: UNK
     Dates: start: 201209, end: 201709
  7. CARELOAD [Concomitant]
     Active Substance: BERAPROST SODIUM
     Dosage: UNK
     Dates: start: 201407, end: 20170213

REACTIONS (3)
  - Dyspnoea exertional [Unknown]
  - Lymphoma [Fatal]
  - Oxygen saturation decreased [Unknown]

NARRATIVE: CASE EVENT DATE: 201705
